FAERS Safety Report 7693238-1 (Version None)
Quarter: 2011Q3

REPORT INFORMATION
  Report Type: 
  Country: None (occurrence: None)
  Receive Date: 20110816
  Receipt Date: 20110809
  Transmission Date: 20111222
  Serious: Yes (Death)
  Sender: FDA-Public Use
  Company Number: 2011SA051226

PATIENT
  Age: 65 Year
  Sex: Male

DRUGS (16)
  1. MELOXICAM [Concomitant]
  2. SPIRONOLACTONE [Concomitant]
  3. PERINODPRIL [Concomitant]
  4. METHYLPREDNISOLONE [Concomitant]
  5. ENOXAPARIN SODIUM [Suspect]
     Indication: THROMBOSIS PROPHYLAXIS
     Dosage: 40 MILLIGRAM(S); DAILY;SUBCUTANEOUS
     Route: 058
     Dates: start: 20071114, end: 20071120
  6. MAGNESIUM OXIDE [Concomitant]
  7. FOLIC ACID [Concomitant]
  8. ISOSORBIDE DINITRATE [Concomitant]
  9. ISOSORBIDE DINITRATE [Concomitant]
  10. DIGOXIN [Concomitant]
  11. HYDROXYCHLOROQUINE [Concomitant]
  12. SOFALCONE [Concomitant]
  13. MIZORIBINE [Concomitant]
  14. ASPIRIN [Concomitant]
  15. FUROSEMIDE [Concomitant]
  16. PLACEBO [Suspect]
     Indication: THROMBOSIS PROPHYLAXIS
     Dates: start: 20071114, end: 20071201

REACTIONS (18)
  - PULMONARY OEDEMA [None]
  - LYMPHOCYTE PERCENTAGE DECREASED [None]
  - CARDIAC FAILURE [None]
  - CYANOSIS [None]
  - BLOOD CREATININE INCREASED [None]
  - HAEMATOCRIT DECREASED [None]
  - DYSPNOEA [None]
  - BLOOD GLUCOSE INCREASED [None]
  - SOMNOLENCE [None]
  - TACHYPNOEA [None]
  - PROTHROMBIN TIME PROLONGED [None]
  - NEUTROPHIL PERCENTAGE INCREASED [None]
  - MONOCYTE PERCENTAGE DECREASED [None]
  - RESPIRATORY RATE INCREASED [None]
  - BLOOD UREA INCREASED [None]
  - HAEMOGLOBIN DECREASED [None]
  - MENTAL STATUS CHANGES [None]
  - WHITE BLOOD CELL COUNT INCREASED [None]
